FAERS Safety Report 7805151-7 (Version None)
Quarter: 2011Q4

REPORT INFORMATION
  Report Type: 
  Country: None (occurrence: None)
  Receive Date: 20111010
  Receipt Date: 20110929
  Transmission Date: 20120403
  Serious: Yes (Other)
  Sender: FDA-Public Use
  Company Number: PHHY2011FR86657

PATIENT
  Age: 54 Year
  Sex: Female

DRUGS (6)
  1. ATENOLOL [Concomitant]
  2. ATORVASTATIN CALCIUM [Concomitant]
  3. MINIRIN [Concomitant]
  4. CLONAZEPAM [Concomitant]
  5. CLOZAPINE [Suspect]
     Indication: DYSTHYMIC DISORDER
     Dosage: 300 MG DAILY
  6. CLOZAPINE [Suspect]
     Indication: SCHIZOPHRENIA
     Dosage: 200 MG, UNK

REACTIONS (2)
  - ANTIPSYCHOTIC DRUG LEVEL INCREASED [None]
  - AMNESTIC DISORDER [None]
